FAERS Safety Report 16341641 (Version 1)
Quarter: 2019Q2

REPORT INFORMATION
  Report Type: Other
  Country: FR (occurrence: FR)
  Receive Date: 20190522
  Receipt Date: 20190522
  Transmission Date: 20190711
  Serious: Yes (Other)
  Sender: FDA-Public Use
  Company Number: FR-ASTELLAS-2019US021278

PATIENT
  Age: 87 Year
  Sex: Female

DRUGS (5)
  1. TAGRISSO [Suspect]
     Active Substance: OSIMERTINIB
     Route: 048
     Dates: start: 20180625, end: 201808
  2. TARCEVA [Suspect]
     Active Substance: ERLOTINIB HYDROCHLORIDE
     Route: 065
     Dates: start: 20190221
  3. TAGRISSO [Suspect]
     Active Substance: OSIMERTINIB
     Indication: PRODUCT USED FOR UNKNOWN INDICATION
     Dosage: UNK UNK, UNKNOWN FREQ.
     Route: 048
     Dates: start: 201803, end: 201804
  4. TARCEVA [Suspect]
     Active Substance: ERLOTINIB HYDROCHLORIDE
     Indication: PRODUCT USED FOR UNKNOWN INDICATION
     Route: 065
  5. IRESSA [Suspect]
     Active Substance: GEFITINIB
     Indication: PRODUCT USED FOR UNKNOWN INDICATION
     Dosage: UNK, UNKNOWN FREQ.
     Route: 048

REACTIONS (2)
  - Electrocardiogram QT prolonged [Unknown]
  - Diarrhoea [Unknown]

NARRATIVE: CASE EVENT DATE: 201804
